FAERS Safety Report 5892559-2 (Version None)
Quarter: 2008Q3

REPORT INFORMATION
  Report Type: 
  Country: None (occurrence: None)
  Receive Date: 20080923
  Receipt Date: 20080917
  Transmission Date: 20090109
  Serious: Yes (Hospitalization)
  Sender: FDA-Public Use
  Company Number: IT-BAYER-200825286GPV

PATIENT
  Age: 37 Year
  Sex: Female

DRUGS (1)
  1. AVELOX [Suspect]
     Indication: DRUG USE FOR UNKNOWN INDICATION
     Dosage: TOTAL DAILY DOSE: 400 MG  UNIT DOSE: 400 MG
     Route: 048
     Dates: start: 20080826, end: 20080827

REACTIONS (5)
  - ANXIETY [None]
  - ASTHENIA [None]
  - GAIT DISTURBANCE [None]
  - HYPOTONIA [None]
  - SPEECH DISORDER [None]
